FAERS Safety Report 22905303 (Version 2)
Quarter: 2023Q4

REPORT INFORMATION
  Report Type: Spontaneous
  Country: US (occurrence: US)
  Receive Date: 20230905
  Receipt Date: 20231206
  Transmission Date: 20240110
  Serious: No
  Sender: FDA-Public Use
  Company Number: US-BRISTOL-MYERS SQUIBB COMPANY-2023-124651

PATIENT
  Age: 24 Year
  Sex: Female
  Weight: 37.1 kg

DRUGS (2)
  1. NULOJIX [Suspect]
     Active Substance: BELATACEPT
     Indication: Renal transplant
     Dosage: DOSE : UNKNOWN;     FREQ : MONTHLY
     Route: 042
     Dates: start: 202302
  2. NULOJIX [Suspect]
     Active Substance: BELATACEPT
     Dosage: DOSE : UNKNOWN;     FREQ : MONTHLY
     Route: 042
     Dates: start: 20230901

REACTIONS (1)
  - Weight decreased [Unknown]

NARRATIVE: CASE EVENT DATE: 20230901
